FAERS Safety Report 5692331-2 (Version None)
Quarter: 2008Q2

REPORT INFORMATION
  Report Type: 
  Country: None (occurrence: None)
  Receive Date: 20080402
  Receipt Date: 20080327
  Transmission Date: 20081010
  Serious: Yes (Death)
  Sender: FDA-Public Use
  Company Number: AU-ALLERGAN-0802054US

PATIENT
  Sex: Female

DRUGS (1)
  1. BOTOX [Suspect]
     Indication: DRUG USE FOR UNKNOWN INDICATION
     Dosage: 120 UNITS, SINGLE
     Route: 030
     Dates: start: 20060630, end: 20060630

REACTIONS (2)
  - ASPIRATION [None]
  - CHOKING [None]
